FAERS Safety Report 14677111 (Version 1)
Quarter: 2018Q1

REPORT INFORMATION
  Report Type: Spontaneous
  Country: US (occurrence: US)
  Receive Date: 20180323
  Receipt Date: 20180323
  Transmission Date: 20180509
  Serious: Yes (Hospitalization)
  Sender: FDA-Public Use
  Company Number: None

PATIENT
  Age: 63 Year
  Sex: Male
  Weight: 70.6 kg

DRUGS (3)
  1. ELOXATIN [Suspect]
     Active Substance: OXALIPLATIN
     Dates: end: 20180307
  2. LEUCOVORIN CALCIUM. [Suspect]
     Active Substance: LEUCOVORIN CALCIUM
     Dates: end: 20180307
  3. 5-FLUOROURACIL (5-FU) [Suspect]
     Active Substance: FLUOROURACIL
     Dates: end: 20180309

REACTIONS (8)
  - Acute kidney injury [None]
  - Asthenia [None]
  - Fall [None]
  - Blood potassium decreased [None]
  - Abdominal pain [None]
  - Hypophagia [None]
  - Diarrhoea [None]
  - Syncope [None]

NARRATIVE: CASE EVENT DATE: 20180319
